FAERS Safety Report 8192276-2 (Version None)
Quarter: 2012Q1

REPORT INFORMATION
  Report Type: 
  Country: None (occurrence: None)
  Receive Date: 20120307
  Receipt Date: 20120227
  Transmission Date: 20120608
  Serious: Yes (Hospitalization)
  Sender: FDA-Public Use
  Company Number: US-ASTRAZENECA-2011SE78177

PATIENT
  Age: 65 Year
  Sex: Male

DRUGS (14)
  1. ASPIRIN [Concomitant]
     Dosage: 2-81 MGS
  2. PLAVIX [Concomitant]
  3. METOCLOPRAMIDE [Concomitant]
  4. GAS RELIEF [Concomitant]
     Dosage: AS NEEDED
  5. GENTAMICIN [Concomitant]
     Dosage: 15 ML
  6. DIOVAN [Concomitant]
  7. CARVEDILOL [Concomitant]
     Dosage: 3-125 MGS
  8. RENAL SOFT GELS [Concomitant]
  9. CRESTOR [Suspect]
     Route: 048
  10. CALCIUM ACETATE [Concomitant]
  11. OMEPRAZOLE [Suspect]
     Route: 048
  12. AMLODIPINE BESYLATE [Concomitant]
  13. STOOL SOFTENER [Concomitant]
     Dosage: TWO AT NIGHT
  14. MEGESTROL ACETATE [Concomitant]

REACTIONS (2)
  - MALAISE [None]
  - GAIT DISTURBANCE [None]
